FAERS Safety Report 10156985 (Version 1)
Quarter: 2014Q2

REPORT INFORMATION
  Report Type: Spontaneous
  Country: FR (occurrence: FR)
  Receive Date: 20140507
  Receipt Date: 20140507
  Transmission Date: 20141212
  Serious: Yes (Hospitalization, Other)
  Sender: FDA-Public Use
  Company Number: FR-JNJFOC-20140500398

PATIENT
  Age: 13 Year
  Sex: Female

DRUGS (3)
  1. REMICADE [Suspect]
     Indication: CROHN^S DISEASE
     Route: 042
     Dates: start: 201312
  2. REMICADE [Suspect]
     Indication: CROHN^S DISEASE
     Dosage: 20TH INFUSION
     Route: 042
     Dates: start: 20140108, end: 20140108
  3. REMICADE [Suspect]
     Indication: CROHN^S DISEASE
     Route: 042
     Dates: start: 201108

REACTIONS (4)
  - Infusion related reaction [Recovered/Resolved]
  - Hypersensitivity [Recovered/Resolved]
  - Anal abscess [Unknown]
  - Drug specific antibody present [Unknown]
